FAERS Safety Report 7883404-4 (Version None)
Quarter: 2011Q4

REPORT INFORMATION
  Report Type: 
  Country: None (occurrence: None)
  Receive Date: 20111031
  Receipt Date: 20111018
  Transmission Date: 20120403
  Serious: Yes (Life-Threatening, Other)
  Sender: FDA-Public Use
  Company Number: LTI2011A00189

PATIENT
  Age: 76 Year
  Sex: Male

DRUGS (5)
  1. GLUCOVANCE [Concomitant]
  2. PLAVIX [Concomitant]
  3. PANTOPRAZOLE [Concomitant]
  4. ACTOS [Suspect]
     Indication: TYPE 2 DIABETES MELLITUS
     Dosage: 1 TAB, (1 TAB., D) ORAL
     Route: 048
     Dates: start: 20060101, end: 20110310
  5. ATORVASTATIN CALCIUM [Concomitant]

REACTIONS (2)
  - HAEMATURIA [None]
  - BLADDER CANCER [None]
